FAERS Safety Report 6955047-8 (Version None)
Quarter: 2010Q3

REPORT INFORMATION
  Report Type: 
  Country: None (occurrence: None)
  Receive Date: 20100830
  Receipt Date: 20100824
  Transmission Date: 20110219
  Serious: Yes (Death, Hospitalization, Other)
  Sender: FDA-Public Use
  Company Number: US-CELGENEUS-163-21880-10061739

PATIENT
  Sex: Male

DRUGS (4)
  1. REVLIMID [Suspect]
     Route: 048
     Dates: start: 20100607, end: 20100611
  2. REVLIMID [Suspect]
     Route: 048
     Dates: start: 20100510, end: 20100514
  3. VIDAZA [Suspect]
     Route: 051
     Dates: start: 20100602, end: 20100606
  4. VIDAZA [Suspect]
     Route: 051
     Dates: start: 20100503, end: 20100507

REACTIONS (3)
  - DEATH [None]
  - FEBRILE NEUTROPENIA [None]
  - INFECTION [None]
